FAERS Safety Report 7463267-1 (Version None)
Quarter: 2011Q2

REPORT INFORMATION
  Report Type: 
  Country: None (occurrence: None)
  Receive Date: 20110506
  Receipt Date: 20110502
  Transmission Date: 20111010
  Serious: Yes (Other)
  Sender: FDA-Public Use
  Company Number: US-ROCHE-774732

PATIENT
  Sex: Female

DRUGS (1)
  1. BONIVA [Suspect]
     Dosage: TAKEN FOR OVER AN YEAR
     Route: 065

REACTIONS (3)
  - THYROID NEOPLASM [None]
  - BREAST CANCER FEMALE [None]
  - BREAST CANCER [None]
